FAERS Safety Report 5380545-0 (Version None)
Quarter: 2007Q3

REPORT INFORMATION
  Report Type: 
  Country: None (occurrence: None)
  Receive Date: 20070706
  Receipt Date: 20070705
  Transmission Date: 20080115
  Serious: Yes (Other)
  Sender: FDA-Public Use
  Company Number: US-BAYER-200613779BWH

PATIENT
  Sex: Male

DRUGS (2)
  1. NEXAVAR [Suspect]
     Indication: RENAL CELL CARCINOMA STAGE UNSPECIFIED
     Route: 048
     Dates: start: 20060401
  2. NON HUMIDIFIED OXYGEN [Concomitant]

REACTIONS (4)
  - CONJUNCTIVITIS [None]
  - CORNEAL PERFORATION [None]
  - DRY EYE [None]
  - DYSPHONIA [None]
